FAERS Safety Report 4886184-X (Version None)
Quarter: 2006Q1

REPORT INFORMATION
  Report Type: 
  Country: None (occurrence: None)
  Receive Date: 20060120
  Receipt Date: 20060116
  Transmission Date: 20060701
  Serious: Yes (Other)
  Sender: FDA-Public Use
  Company Number: JNJPOC-20051004964

PATIENT
  Age: 50 Year
  Sex: Male
  Weight: 70 kg

DRUGS (6)
  1. FLUTICASON [Suspect]
  2. RISPERDAL [Suspect]
     Route: 048
  3. IBUPROFEN [Suspect]
     Dosage: 600MG SINGLE DOSE
  4. SAROTEN [Suspect]
     Dosage: 75MG SINGLE DOSE
  5. TEGRETOL [Suspect]
     Dosage: 200MG SINGLE DOSE
  6. ALCOHOL [Suspect]

REACTIONS (3)
  - ALCOHOL USE [None]
  - FATIGUE [None]
  - SUICIDE ATTEMPT [None]
